FAERS Safety Report 24022281 (Version 1)
Quarter: 2024Q2

REPORT INFORMATION
  Report Type: Spontaneous
  Country: CR (occurrence: CR)
  Receive Date: 20240627
  Receipt Date: 20240627
  Transmission Date: 20240716
  Serious: No
  Sender: FDA-Public Use
  Company Number: CR-ROCHE-3530350

PATIENT
  Age: 62 Year
  Sex: Male

DRUGS (2)
  1. FARICIMAB [Suspect]
     Active Substance: FARICIMAB
     Indication: Venous occlusion
     Dosage: 4 DOSES
     Route: 065
  2. FARICIMAB [Suspect]
     Active Substance: FARICIMAB
     Indication: Cystoid macular oedema

REACTIONS (2)
  - Off label use [Unknown]
  - No adverse event [Unknown]
